APPROVED DRUG PRODUCT: LABETALOL HYDROCHLORIDE
Active Ingredient: LABETALOL HYDROCHLORIDE
Strength: 100MG
Dosage Form/Route: TABLET;ORAL
Application: A200908 | Product #001 | TE Code: AB
Applicant: PH HEALTH LTD
Approved: Jul 10, 2012 | RLD: No | RS: No | Type: RX